FAERS Safety Report 6313344-3 (Version None)
Quarter: 2009Q3

REPORT INFORMATION
  Report Type: 
  Country: None (occurrence: None)
  Receive Date: 20090818
  Receipt Date: 20090807
  Transmission Date: 20100115
  Serious: Yes (Disabling)
  Sender: FDA-Public Use
  Company Number: B0588043A

PATIENT
  Age: 30 Year
  Sex: Female
  Weight: 95 kg

DRUGS (3)
  1. ALLI [Suspect]
     Dosage: 60MG VARIABLE DOSE
     Route: 048
     Dates: start: 20090725
  2. VITERRA [Concomitant]
  3. DESOGESTREL AND ETHINYL ESTRADIOL [Concomitant]

REACTIONS (3)
  - FATIGUE [None]
  - MALAISE [None]
  - SOMNOLENCE [None]
